FAERS Safety Report 25174032 (Version 3)
Quarter: 2025Q2

REPORT INFORMATION
  Report Type: Spontaneous
  Country: US (occurrence: US)
  Receive Date: 20250408
  Receipt Date: 20250421
  Transmission Date: 20250716
  Serious: No
  Sender: SANOFI AVENTIS
  Company Number: US-SANOFI-02475027

PATIENT
  Age: 60 Year
  Sex: Male
  Weight: 100.45 kg

DRUGS (3)
  1. DUPIXENT [Suspect]
     Active Substance: DUPILUMAB
     Indication: Amyloidosis
     Dosage: 300 MG, QOW
     Route: 058
     Dates: start: 20250318
  2. DUPIXENT [Suspect]
     Active Substance: DUPILUMAB
     Indication: Dermatitis atopic
  3. VYNDAMAX [Concomitant]
     Active Substance: TAFAMIDIS
     Dates: start: 20240715

REACTIONS (6)
  - Injection site urticaria [Unknown]
  - Abdominal discomfort [Not Recovered/Not Resolved]
  - Bowel movement irregularity [Not Recovered/Not Resolved]
  - Product use in unapproved indication [Unknown]
  - Accidental exposure to product [Unknown]
  - Exposure via skin contact [Unknown]

NARRATIVE: CASE EVENT DATE: 20250101
